FAERS Safety Report 10967675 (Version 1)
Quarter: 2015Q1

REPORT INFORMATION
  Report Type: Spontaneous
  Country: US (occurrence: US)
  Receive Date: 20150330
  Receipt Date: 20150330
  Transmission Date: 20150721
  Serious: No
  Sender: FDA-Public Use
  Company Number: US-ASTRAZENECA-2013SE93979

PATIENT
  Age: 74 Year
  Sex: Female
  Weight: 45.8 kg

DRUGS (3)
  1. NEXIUM [Suspect]
     Active Substance: ESOMEPRAZOLE MAGNESIUM
     Indication: GASTROOESOPHAGEAL REFLUX DISEASE
     Dosage: TOOK HALF THE DOSE OF THE CAPSULE
     Route: 048
     Dates: start: 20131225
  2. NEXIUM [Suspect]
     Active Substance: ESOMEPRAZOLE MAGNESIUM
     Indication: GASTROOESOPHAGEAL REFLUX DISEASE
     Route: 048
     Dates: start: 20131224
  3. FLECAINIDE [Concomitant]
     Active Substance: FLECAINIDE
     Indication: ATRIAL FIBRILLATION
     Dosage: NOT GIVEN

REACTIONS (5)
  - Dry eye [Unknown]
  - Drug effect increased [Unknown]
  - Intentional product misuse [Unknown]
  - Eye irritation [Unknown]
  - Dry mouth [Unknown]

NARRATIVE: CASE EVENT DATE: 20131224
